FAERS Safety Report 4297212-7 (Version None)
Quarter: 2004Q1

REPORT INFORMATION
  Report Type: 
  Country: None (occurrence: None)
  Receive Date: 20040218
  Receipt Date: 20030926
  Transmission Date: 20041129
  Serious: Yes (Other)
  Sender: FDA-Public Use
  Company Number: 200319540GDDC

PATIENT
  Age: 63 Year
  Sex: Female
  Weight: 78 kg

DRUGS (6)
  1. ARAVA [Suspect]
     Indication: RHEUMATOID ARTHRITIS
     Route: 048
     Dates: start: 20020917, end: 20030819
  2. HYDROXYCHLOROQUINE [Concomitant]
     Dosage: DOSE: UNK
     Dates: start: 20030801
  3. VIOXX [Concomitant]
  4. PREMARIN [Concomitant]
     Dosage: DOSE: UNK
  5. PREDNISONE [Concomitant]
     Dosage: DOSE: UNK
  6. VASTIN [Concomitant]
     Dosage: DOSE: UNK

REACTIONS (11)
  - ALANINE AMINOTRANSFERASE INCREASED [None]
  - ASPARTATE AMINOTRANSFERASE INCREASED [None]
  - BLOOD ALKALINE PHOSPHATASE INCREASED [None]
  - BLOOD CHOLESTEROL INCREASED [None]
  - BLOOD LACTATE DEHYDROGENASE INCREASED [None]
  - GAMMA-GLUTAMYLTRANSFERASE INCREASED [None]
  - LIVER FUNCTION TEST ABNORMAL [None]
  - NEUTROPHIL COUNT INCREASED [None]
  - PLATELET COUNT INCREASED [None]
  - RASH [None]
  - WHITE BLOOD CELL COUNT INCREASED [None]
